FAERS Safety Report 10274691 (Version 1)
Quarter: 2014Q3

REPORT INFORMATION
  Report Type: Report from Study
  Country: CO (occurrence: CO)
  Receive Date: 20140702
  Receipt Date: 20140702
  Transmission Date: 20150326
  Serious: Yes (Other)
  Sender: FDA-Public Use
  Company Number: CO-ABBVIE-14P-036-1255304-00

PATIENT
  Age: 44 Year
  Sex: Male
  Weight: 102 kg

DRUGS (1)
  1. HUMIRA [Suspect]
     Active Substance: ADALIMUMAB
     Indication: PSORIASIS
     Route: 058
     Dates: start: 20110404, end: 20140606

REACTIONS (2)
  - Skin lesion [Recovering/Resolving]
  - Skin cancer [Recovering/Resolving]

NARRATIVE: CASE EVENT DATE: 20131102
